FAERS Safety Report 16708896 (Version 1)
Quarter: 2019Q3

REPORT INFORMATION
  Report Type: Spontaneous
  Country: US (occurrence: US)
  Receive Date: 20190816
  Receipt Date: 20190816
  Transmission Date: 20191004
  Serious: Yes (Hospitalization, Other)
  Sender: FDA-Public Use
  Company Number: US-AUROBINDO-AUR-APL-2019-046324

PATIENT

DRUGS (4)
  1. CAPECITABINE TABLETS [Suspect]
     Active Substance: CAPECITABINE
     Indication: TRIPLE NEGATIVE BREAST CANCER
     Dosage: UNK (CYCLE, ADJUVANT THERAPY)
     Route: 048
  2. PACLITAXEL. [Concomitant]
     Active Substance: PACLITAXEL
     Indication: TRIPLE NEGATIVE BREAST CANCER
     Dosage: UNK (CYCLE, NEOADJUVANT CHEMOTHERAPY)
     Route: 065
  3. DOXORUBICIN [Concomitant]
     Active Substance: DOXORUBICIN
     Indication: TRIPLE NEGATIVE BREAST CANCER
     Dosage: UNK (CYCLE, NEOADJUVANT CHEMOTHERAPY)
     Route: 065
  4. CYCLOPHOSPHAMIDE. [Concomitant]
     Active Substance: CYCLOPHOSPHAMIDE
     Indication: TRIPLE NEGATIVE BREAST CANCER
     Dosage: UNK (NEOADJUVANT CHEMOTHERAPY)
     Route: 065

REACTIONS (6)
  - Pneumatosis intestinalis [Recovered/Resolved]
  - Drug intolerance [Recovered/Resolved]
  - Intestinal perforation [Recovered/Resolved]
  - Pneumoperitoneum [Recovered/Resolved]
  - Acute kidney injury [Recovered/Resolved]
  - Nausea [Recovered/Resolved]
